FAERS Safety Report 26022545 (Version 1)
Quarter: 2025Q4

REPORT INFORMATION
  Report Type: Spontaneous
  Country: EU (occurrence: EU)
  Receive Date: 20251110
  Receipt Date: 20251110
  Transmission Date: 20260118
  Serious: Yes (Hospitalization, Other)
  Sender: BOEHRINGER INGELHEIM
  Company Number: None

PATIENT
  Age: 67 Year
  Sex: Female
  Weight: 71 kg

DRUGS (7)
  1. JARDIANCE [Suspect]
     Active Substance: EMPAGLIFLOZIN
     Indication: Diabetes mellitus
     Dosage: 1-0-0?INTAKE UNTIL  08-OCT-2025 (IN HOSPITAL)
     Dates: start: 20250723, end: 202510
  2. METFORMIN [Concomitant]
     Active Substance: METFORMIN HYDROCHLORIDE
     Indication: Diabetes mellitus
     Dosage: 1-0-1
     Dates: start: 20150511
  3. L-Thyroxin Henning 100 [Concomitant]
     Indication: Hypothyroidism
     Dosage: 1-0-0?INTAKE SINCE AT LEAST 2017
  4. APIDRA [Concomitant]
     Active Substance: INSULIN GLULISINE
     Indication: Diabetes mellitus
     Dosage: ACCORDING TO SCHEDULE
  5. TOUJEO [Concomitant]
     Active Substance: INSULIN GLARGINE
     Indication: Diabetes mellitus
     Dosage: 0-0-0-6
     Dates: start: 202108
  6. Bezafibrat 400 retard [Concomitant]
     Indication: Blood cholesterol increased
     Dosage: 0-0-1
     Dates: start: 2004
  7. Elebrato Ellipta 92 Mikrogramm/55 Mikrogramm/22 Mikrogramm einzeldosis [Concomitant]
     Indication: Chronic obstructive pulmonary disease
     Dosage: 1-0-0
     Dates: start: 202503

REACTIONS (6)
  - Euglycaemic diabetic ketoacidosis [Unknown]
  - Hyperventilation [Unknown]
  - General physical health deterioration [Unknown]
  - Dehydration [Unknown]
  - Malaise [Unknown]
  - Mobility decreased [Unknown]

NARRATIVE: CASE EVENT DATE: 20251007
